FAERS Safety Report 7783154-9 (Version None)
Quarter: 2011Q3

REPORT INFORMATION
  Report Type: 
  Country: None (occurrence: None)
  Receive Date: 20110928
  Receipt Date: 20110914
  Transmission Date: 20111222
  Serious: Yes (Life-Threatening, Hospitalization)
  Sender: FDA-Public Use
  Company Number: US-BRISTOL-MYERS SQUIBB COMPANY-16058513

PATIENT
  Age: 33 Year
  Sex: Female
  Weight: 64 kg

DRUGS (1)
  1. COUMADIN [Suspect]
     Dosage: FOR 8 YEARS,HAS TO STAY ON FOR REST OF LIFE,RESTARTED, STOPPED IN JAN OR FEB 2011
     Dates: end: 20110101

REACTIONS (2)
  - THROMBOSIS [None]
  - PULMONARY THROMBOSIS [None]
